FAERS Safety Report 21736148 (Version 13)
Quarter: 2025Q1

REPORT INFORMATION
  Report Type: Report from Study
  Country: JP (occurrence: JP)
  Receive Date: 20221215
  Receipt Date: 20250326
  Transmission Date: 20250409
  Serious: Yes (Hospitalization, Other)
  Sender: TAKEDA
  Company Number: JP-TAKEDA-2022TJP078813

PATIENT
  Age: 53 Year
  Sex: Female
  Weight: 43 kg

DRUGS (21)
  1. TEDUGLUTIDE [Suspect]
     Active Substance: TEDUGLUTIDE
     Indication: Short-bowel syndrome
     Dates: start: 20220530, end: 20220928
  2. TEDUGLUTIDE [Suspect]
     Active Substance: TEDUGLUTIDE
  3. TEDUGLUTIDE [Suspect]
     Active Substance: TEDUGLUTIDE
  4. TEDUGLUTIDE [Suspect]
     Active Substance: TEDUGLUTIDE
  5. VONOPRAZAN FUMARATE [Concomitant]
     Active Substance: VONOPRAZAN FUMARATE
  6. PENTASA [Concomitant]
     Active Substance: MESALAMINE
     Indication: Short-bowel syndrome
  7. AMINO ACIDS\DEXTROSE\ELECTROLYTES NOS\MINERALS\VITAMINS [Concomitant]
     Active Substance: AMINO ACIDS\DEXTROSE\ELECTROLYTES NOS\MINERALS\VITAMINS
     Indication: Short-bowel syndrome
  8. CALCIUM CHLORIDE\MALTOSE\POTASSIUM CHLORIDE\SODIUM CHLORIDE\SODIUM LAC [Concomitant]
     Active Substance: CALCIUM CHLORIDE\MALTOSE\POTASSIUM CHLORIDE\SODIUM CHLORIDE\SODIUM LACTATE
     Indication: Short-bowel syndrome
  9. CALCIUM CHLORIDE\POTASSIUM CHLORIDE\SODIUM ACETATE\SODIUM CHLORIDE [Concomitant]
     Active Substance: CALCIUM CHLORIDE\POTASSIUM CHLORIDE\SODIUM ACETATE\SODIUM CHLORIDE
     Indication: Short-bowel syndrome
  10. URSO [Concomitant]
     Active Substance: URSODIOL
  11. Cinal [Concomitant]
  12. CYANOCOBALAMIN\PYRIDOXINE HYDROCHLORIDE\THIAMINE [Concomitant]
     Active Substance: CYANOCOBALAMIN\PYRIDOXINE HYDROCHLORIDE\THIAMINE
  13. MOSAPRIDE CITRATE [Concomitant]
     Active Substance: MOSAPRIDE CITRATE
  14. AMLODIPINE BESYLATE [Concomitant]
     Active Substance: AMLODIPINE BESYLATE
  15. POTASSIUM ASPARTATE [Concomitant]
     Active Substance: POTASSIUM ASPARTATE
  16. LOCOID [Concomitant]
     Active Substance: HYDROCORTISONE BUTYRATE
  17. ASELEND [Concomitant]
  18. HERBALS [Concomitant]
     Active Substance: HERBALS
  19. AZULFIDINE EN-TABS [Concomitant]
     Active Substance: SULFASALAZINE
  20. METHYLCOBALAMIN [Concomitant]
     Active Substance: METHYLCOBALAMIN
  21. EDOXABAN TOSYLATE [Concomitant]
     Active Substance: EDOXABAN TOSYLATE

REACTIONS (9)
  - Subileus [Recovered/Resolved]
  - Venous thrombosis [Recovered/Resolved]
  - Arthralgia [Recovering/Resolving]
  - Oedema [Recovering/Resolving]
  - Abdominal pain [Recovered/Resolved]
  - Stoma complication [Unknown]
  - Dehydration [Recovering/Resolving]
  - Headache [Unknown]
  - Abdominal pain [Recovered/Resolved]

NARRATIVE: CASE EVENT DATE: 20220601
